FAERS Safety Report 22178120 (Version 1)
Quarter: 2023Q2

REPORT INFORMATION
  Report Type: Report from Study
  Country: CN (occurrence: CN)
  Receive Date: 20230405
  Receipt Date: 20230405
  Transmission Date: 20230722
  Serious: Yes (Hospitalization)
  Sender: FDA-Public Use
  Company Number: CN-PFIZER INC-PV202200123153

PATIENT
  Age: 55 Year
  Sex: Female
  Weight: 56 kg

DRUGS (14)
  1. EPIRUBICIN HYDROCHLORIDE [Suspect]
     Active Substance: EPIRUBICIN HYDROCHLORIDE
     Indication: Hepatic cancer
     Dosage: UNK
     Dates: start: 20220920
  2. CAMRELIZUMAB [Suspect]
     Active Substance: CAMRELIZUMAB
     Indication: Hepatic cancer
     Dosage: ONCE PER 21 DAYS
     Route: 041
     Dates: start: 20220923, end: 20220923
  3. CAMRELIZUMAB [Suspect]
     Active Substance: CAMRELIZUMAB
     Dosage: ONCE PER 21 DAYS
     Route: 041
     Dates: start: 20221017, end: 20221017
  4. CAMRELIZUMAB [Suspect]
     Active Substance: CAMRELIZUMAB
     Dosage: ONCE PER 21 DAYS
     Route: 041
     Dates: start: 20221103, end: 20221103
  5. CAMRELIZUMAB [Suspect]
     Active Substance: CAMRELIZUMAB
     Dosage: ONCE PER 21 DAYS
     Route: 041
     Dates: start: 20221206, end: 20221206
  6. CAMRELIZUMAB [Suspect]
     Active Substance: CAMRELIZUMAB
     Dosage: ONCE PER 21 DAYS
     Route: 041
     Dates: start: 20230106, end: 20230106
  7. APATINIB [Suspect]
     Active Substance: APATINIB
     Indication: Hepatic cancer
     Dosage: 250 MG, 1X/DAY
     Route: 048
     Dates: start: 20220923, end: 20221016
  8. APATINIB [Suspect]
     Active Substance: APATINIB
     Dosage: 250 MG, 1X/DAY
     Route: 048
     Dates: start: 20221021, end: 20221122
  9. APATINIB [Suspect]
     Active Substance: APATINIB
     Dosage: 250 MG, 1X/DAY
     Route: 048
     Dates: start: 20221206, end: 20221209
  10. APATINIB [Suspect]
     Active Substance: APATINIB
     Dosage: 250 MG, ALTERNATE DAY
     Route: 048
     Dates: start: 20221222, end: 20221227
  11. COMPOUND CARRAGHENATES [Concomitant]
     Indication: Haemorrhoidal haemorrhage
     Dosage: Q.S., 1X/DAY
     Route: 061
     Dates: start: 20221111
  12. HALOMETASONE [Concomitant]
     Active Substance: HALOMETASONE
     Indication: Rash pustular
     Dosage: Q.S, 1X/DAY
     Route: 061
     Dates: start: 20221115, end: 20221129
  13. HALOMETASONE [Concomitant]
     Active Substance: HALOMETASONE
     Indication: Pruritus
  14. ENTECAVIR [Concomitant]
     Active Substance: ENTECAVIR
     Indication: Hepatitis B
     Dosage: 0.5 MG, 1X/DAY
     Route: 048
     Dates: start: 2018

REACTIONS (1)
  - Hepatic function abnormal [Recovered/Resolved]

NARRATIVE: CASE EVENT DATE: 20221130
